FAERS Safety Report 17965816 (Version 1)
Quarter: 2020Q3

REPORT INFORMATION
  Report Type: Spontaneous
  Country: US (occurrence: US)
  Receive Date: 20200701
  Receipt Date: 20200701
  Transmission Date: 20201103
  Serious: Yes (Death)
  Sender: FDA-Public Use
  Company Number: US-ROCHE-2628804

PATIENT
  Age: 61 Year
  Sex: Female

DRUGS (6)
  1. OCREVUS [Suspect]
     Active Substance: OCRELIZUMAB
     Indication: MULTIPLE SCLEROSIS
     Dosage: FIRST INFUSION
     Route: 042
     Dates: start: 201708
  2. LISINOPRIL. [Concomitant]
     Active Substance: LISINOPRIL
  3. AMPYRA [Concomitant]
     Active Substance: DALFAMPRIDINE
  4. PEPCID [Concomitant]
     Active Substance: FAMOTIDINE
  5. BACLOFEN. [Concomitant]
     Active Substance: BACLOFEN
  6. OCREVUS [Suspect]
     Active Substance: OCRELIZUMAB
     Dosage: LAST INFUSION
     Route: 042
     Dates: start: 20191216

REACTIONS (3)
  - Death [Fatal]
  - Infection [Unknown]
  - Asthenia [Unknown]

NARRATIVE: CASE EVENT DATE: 20200401
